FAERS Safety Report 6199847-3 (Version None)
Quarter: 2009Q2

REPORT INFORMATION
  Report Type: 
  Country: None (occurrence: None)
  Receive Date: 20090522
  Receipt Date: 20080610
  Transmission Date: 20091009
  Serious: Yes (Hospitalization)
  Sender: FDA-Public Use
  Company Number: US-ALEXION-A200700056

PATIENT
  Sex: Male
  Weight: 77.279 kg

DRUGS (19)
  1. SOLIRIS [Suspect]
     Indication: PAROXYSMAL NOCTURNAL HAEMOGLOBINURIA
     Dosage: 600 MG, SINGLE
     Route: 042
     Dates: start: 20070713, end: 20070713
  2. SOLIRIS [Suspect]
     Dosage: 600 MG, SINGLE
     Route: 042
     Dates: start: 20070720, end: 20070720
  3. SOLIRIS [Suspect]
     Dosage: 600 MG, SINGLE
     Route: 042
     Dates: start: 20070727, end: 20070727
  4. SOLIRIS [Suspect]
     Dosage: 600 MG, SINGLE
     Route: 042
     Dates: start: 20070803, end: 20070803
  5. SOLIRIS [Suspect]
     Dosage: 900 MG, SINGLE
     Route: 042
     Dates: start: 20070810, end: 20070810
  6. SOLIRIS [Suspect]
     Dosage: 900 MG, SINGLE
     Route: 042
     Dates: start: 20070827, end: 20070827
  7. SOLIRIS [Suspect]
     Dosage: 900 MG, SINGLE
     Route: 042
     Dates: start: 20070921, end: 20070921
  8. SOLIRIS [Suspect]
     Dosage: 900 MG, SINGLE
     Route: 042
     Dates: start: 20071015, end: 20071015
  9. SOLIRIS [Suspect]
     Dosage: 900 MG, SINGLE
     Route: 042
     Dates: start: 20071030, end: 20071030
  10. SOLIRIS [Suspect]
     Dosage: 900 MG, SINGLE
     Route: 042
     Dates: start: 20071113, end: 20071113
  11. SOLIRIS [Suspect]
     Dosage: 900 MG, SINGLE
     Route: 042
     Dates: start: 20071207, end: 20071207
  12. COUMADIN [Concomitant]
     Dosage: 5 MG, UNK
  13. FOLIC ACID [Concomitant]
     Dosage: 1 MG, UNK
  14. LOTREL [Concomitant]
     Dosage: 10/40 MG
  15. NEXIUM [Concomitant]
     Dosage: 40 MG, UNK
  16. OXYCODONE [Concomitant]
     Dosage: 5 MG, UNK
  17. ZOCOR [Concomitant]
     Dosage: 40 MG, UNK
  18. INSULIN [Concomitant]
     Indication: TYPE 1 DIABETES MELLITUS
  19. CYCLOSPORINE [Concomitant]
     Indication: PANCYTOPENIA
     Dosage: 75 MG, QD

REACTIONS (11)
  - ABDOMINAL PAIN [None]
  - FEBRILE NEUTROPENIA [None]
  - HAEMOGLOBIN DECREASED [None]
  - HAEMOLYTIC ANAEMIA [None]
  - INFECTION [None]
  - LABORATORY TEST ABNORMAL [None]
  - NAUSEA [None]
  - PSEUDOMONAS INFECTION [None]
  - PYREXIA [None]
  - SEPSIS [None]
  - VOMITING [None]
